FAERS Safety Report 5200000-8 (Version None)
Quarter: 2007Q1

REPORT INFORMATION
  Report Type: 
  Country: None (occurrence: None)
  Receive Date: 20070103
  Receipt Date: 20061221
  Transmission Date: 20070707
  Serious: Yes (Hospitalization, Other)
  Sender: FDA-Public Use
  Company Number: 2006-08-0442

PATIENT
  Age: 56 Year
  Sex: Female
  Weight: 56.246 kg

DRUGS (6)
  1. PEG-INTRON [Suspect]
     Indication: HEPATITIS C
     Dosage: SC
     Route: 058
     Dates: start: 20060518, end: 20060801
  2. RIBAVIRIN [Suspect]
     Indication: HEPATITIS C
     Dosage: PO
     Route: 048
     Dates: start: 20060518, end: 20060801
  3. LISINOPRIL [Concomitant]
  4. LORAZEPAM [Concomitant]
  5. NIFEDIAC CC (NIFEDIPINE) [Concomitant]
  6. VICODIN [Concomitant]

REACTIONS (27)
  - ALOPECIA [None]
  - ANORECTAL DISORDER [None]
  - ANOREXIA [None]
  - CHROMATURIA [None]
  - CYSTITIS [None]
  - DEHYDRATION [None]
  - DIABETES MELLITUS [None]
  - DIARRHOEA [None]
  - DYSKINESIA [None]
  - DYSPNOEA [None]
  - EPISTAXIS [None]
  - FACE INJURY [None]
  - HAEMOPTYSIS [None]
  - HYSTERECTOMY [None]
  - INSOMNIA [None]
  - MALAISE [None]
  - MUSCLE SPASMS [None]
  - NAUSEA [None]
  - POLLAKIURIA [None]
  - POST PROCEDURAL INFECTION [None]
  - SKIN DISCOLOURATION [None]
  - STAPHYLOCOCCAL INFECTION [None]
  - URINARY INCONTINENCE [None]
  - UTERINE PROLAPSE [None]
  - VAGINAL DISORDER [None]
  - VOMITING [None]
  - WEIGHT DECREASED [None]
